FAERS Safety Report 17896551 (Version 1)
Quarter: 2020Q2

REPORT INFORMATION
  Report Type: Spontaneous
  Country: JP (occurrence: JP)
  Receive Date: 20200615
  Receipt Date: 20200615
  Transmission Date: 20200714
  Serious: Yes (Other)
  Sender: FDA-Public Use
  Company Number: JP-ROCHE-2621657

PATIENT
  Age: 8 Decade
  Sex: Female

DRUGS (1)
  1. AVASTIN [Suspect]
     Active Substance: BEVACIZUMAB
     Indication: OVARIAN CANCER
     Route: 041

REACTIONS (2)
  - Renal impairment [Not Recovered/Not Resolved]
  - Hypertension [Unknown]
